FAERS Safety Report 24283277 (Version 1)
Quarter: 2024Q3

REPORT INFORMATION
  Report Type: Report from Study
  Country: US (occurrence: US)
  Receive Date: 20240904
  Receipt Date: 20240904
  Transmission Date: 20241016
  Serious: No
  Sender: DR REDDYS
  Company Number: US-DRL-USA-CLI/USA/24/0012601

PATIENT
  Age: 9 Year
  Sex: Female

DRUGS (1)
  1. JAVYGTOR [Suspect]
     Active Substance: SAPROPTERIN DIHYDROCHLORIDE
     Indication: Product used for unknown indication
     Dosage: ROUTE: PLACE PACKET INTO APPLE JUICE?STOP DATE: 3 MONTHS AGO
     Route: 065

REACTIONS (1)
  - Product dose omission issue [Not Recovered/Not Resolved]
